FAERS Safety Report 20449639 (Version 2)
Quarter: 2022Q1

REPORT INFORMATION
  Report Type: Spontaneous
  Country: US (occurrence: None)
  Receive Date: 20220209
  Receipt Date: 20220316
  Transmission Date: 20220423
  Serious: No
  Sender: FDA-Public Use
  Company Number: 2022A053511

PATIENT
  Sex: Male
  Weight: 91.6 kg

DRUGS (1)
  1. FASENRA [Suspect]
     Active Substance: BENRALIZUMAB
     Indication: Asthma
     Dosage: 2 FASENRA INJECTIONS THUS FAR
     Route: 058

REACTIONS (4)
  - Asthma [Unknown]
  - Sleep disorder [Unknown]
  - Inappropriate schedule of product administration [Unknown]
  - Product distribution issue [Unknown]
